FAERS Safety Report 24414773 (Version 2)
Quarter: 2024Q4

REPORT INFORMATION
  Report Type: Spontaneous
  Country: US (occurrence: US)
  Receive Date: 20241009
  Receipt Date: 20241025
  Transmission Date: 20250114
  Serious: No
  Sender: APOTEX
  Company Number: US-APOTEX-2024AP011444

PATIENT
  Age: 71 Year
  Sex: Female

DRUGS (1)
  1. IPRATROPIUM BROMIDE [Suspect]
     Active Substance: IPRATROPIUM BROMIDE
     Indication: Sinus disorder
     Dosage: 4 DOSAGE FORM, TID (2 SPRAYS IN EACH NOSTRIL UP TO 3 TIMES A DAY), OCCASIONALLY
     Route: 045

REACTIONS (1)
  - Rash [Recovering/Resolving]
